FAERS Safety Report 5546915-2 (Version None)
Quarter: 2007Q4

REPORT INFORMATION
  Report Type: 
  Country: None (occurrence: None)
  Receive Date: 20071211
  Receipt Date: 20071130
  Transmission Date: 20080405
  Serious: Yes (Other)
  Sender: FDA-Public Use
  Company Number: US-PFIZER INC-2007042954

PATIENT
  Sex: Male
  Weight: 68 kg

DRUGS (15)
  1. VIAGRA [Suspect]
     Indication: ERECTILE DYSFUNCTION
     Dates: start: 20010101, end: 20050101
  2. LEVITRA [Concomitant]
     Indication: ERECTILE DYSFUNCTION
     Dates: start: 20050101, end: 20060101
  3. FLOMAX [Concomitant]
     Indication: PROSTATOMEGALY
     Dates: start: 20060101, end: 20070610
  4. OMEPRAZOLE [Concomitant]
     Dates: start: 20040206, end: 20070610
  5. ALL OTHER THERAPEUTIC PRODUCTS [Concomitant]
     Route: 045
     Dates: start: 20010101, end: 20060101
  6. NASAREL [Concomitant]
     Route: 045
     Dates: start: 20010101, end: 20060101
  7. DILAUDID [Concomitant]
     Indication: BACK PAIN
     Dates: start: 20050201, end: 20070501
  8. HYTRIN [Concomitant]
     Dates: start: 20040101, end: 20060101
  9. PROMETHAZINE [Concomitant]
     Dates: start: 20010101, end: 20060101
  10. VITAMIN CAP [Concomitant]
     Dates: start: 19970101, end: 20070610
  11. OCUVITE [Concomitant]
     Dates: start: 20060101, end: 20070610
  12. IRON [Concomitant]
     Dates: start: 20040101, end: 20070101
  13. VITAMIN B COMPLEX CAP [Concomitant]
     Dates: start: 20040101, end: 20070610
  14. ASPIRIN [Concomitant]
     Dates: start: 20050101, end: 20070101
  15. ROBITUSSIN DM-P [Concomitant]
     Dates: start: 19990101, end: 20070405

REACTIONS (3)
  - OPTIC DISC DRUSEN [None]
  - OPTIC ISCHAEMIC NEUROPATHY [None]
  - OPTIC NERVE HYPOPLASIA [None]
